FAERS Safety Report 5625439-8 (Version None)
Quarter: 2008Q1

REPORT INFORMATION
  Report Type: 
  Country: None (occurrence: None)
  Receive Date: 20080211
  Receipt Date: 20080131
  Transmission Date: 20080703
  Serious: Yes (Hospitalization)
  Sender: FDA-Public Use
  Company Number: CLOF-10542

PATIENT
  Age: 71 Year
  Sex: Female

DRUGS (2)
  1. CLOFARABINE (CLOFARABINE) 30MG/M2 [Suspect]
     Indication: ACUTE MYELOID LEUKAEMIA
     Dosage: 54.6 MG, QDX5, INTRAVENOUS; 36.2 MG, QDX5, INTRAVENOUS
     Route: 042
     Dates: start: 20070302, end: 20070306
  2. CLOFARABINE (CLOFARABINE) 30MG/M2 [Suspect]
     Indication: ACUTE MYELOID LEUKAEMIA
     Dosage: 54.6 MG, QDX5, INTRAVENOUS; 36.2 MG, QDX5, INTRAVENOUS
     Route: 042
     Dates: start: 20070403, end: 20070407

REACTIONS (1)
  - BONE MARROW FAILURE [None]
